FAERS Safety Report 6837466-3 (Version None)
Quarter: 2010Q3

REPORT INFORMATION
  Report Type: 
  Country: None (occurrence: None)
  Receive Date: 20100713
  Receipt Date: 20070516
  Transmission Date: 20110219
  Serious: No
  Sender: FDA-Public Use
  Company Number: US-PFIZER INC-2007039670

PATIENT
  Sex: Female

DRUGS (5)
  1. CHANTIX [Suspect]
     Indication: SMOKING CESSATION THERAPY
     Dates: start: 20070509
  2. ADVAIR DISKUS 100/50 [Suspect]
  3. VALSARTAN [Concomitant]
  4. DYAZIDE [Concomitant]
  5. LOTREL [Concomitant]

REACTIONS (2)
  - DYSPNOEA [None]
  - HEART RATE INCREASED [None]
